FAERS Safety Report 11377983 (Version 2)
Quarter: 2015Q3

REPORT INFORMATION
  Report Type: Spontaneous
  Country: US (occurrence: US)
  Receive Date: 20150811
  Receipt Date: 20150903
  Transmission Date: 20151125
  Serious: No
  Sender: FDA-Public Use
  Company Number: US-ELI_LILLY_AND_COMPANY-US200912003038

PATIENT
  Age: 71 Year
  Sex: Female
  Weight: 90.7 kg

DRUGS (20)
  1. HUMALOG [Suspect]
     Active Substance: INSULIN LISPRO
     Dosage: UNK, AS NEEDED
     Route: 058
     Dates: start: 1999, end: 20081130
  2. SALAGEN [Concomitant]
     Active Substance: PILOCARPINE HYDROCHLORIDE
     Indication: DRY MOUTH
  3. HYZAAR [Concomitant]
     Active Substance: HYDROCHLOROTHIAZIDE\LOSARTAN POTASSIUM
  4. HUMULIN R [Suspect]
     Active Substance: INSULIN HUMAN
     Indication: DIABETES MELLITUS
     Dosage: UNK, 2/D
     Dates: start: 1962, end: 1997
  5. HUMALOG [Suspect]
     Active Substance: INSULIN LISPRO
     Indication: DIABETES MELLITUS
     Dosage: UNK, AS NEEDED
     Dates: start: 20091130
  6. AMITRIPTYLINE [Concomitant]
     Active Substance: AMITRIPTYLINE
  7. ASPIRIN. [Concomitant]
     Active Substance: ASPIRIN
  8. HUMALOG [Suspect]
     Active Substance: INSULIN LISPRO
     Indication: DIABETES MELLITUS
     Dosage: UNK, AS NEEDED
     Dates: start: 20081130
  9. HUMALOG [Suspect]
     Active Substance: INSULIN LISPRO
     Dosage: UNK, AS NEEDED
     Dates: start: 20091130
  10. PLAVIX [Concomitant]
     Active Substance: CLOPIDOGREL BISULFATE
  11. PROZAC [Concomitant]
     Active Substance: FLUOXETINE HYDROCHLORIDE
  12. BISOPROLOL [Concomitant]
     Active Substance: BISOPROLOL
  13. MOBIC [Concomitant]
     Active Substance: MELOXICAM
     Dosage: UNK, AS NEEDED
  14. LANTUS [Concomitant]
     Active Substance: INSULIN GLARGINE
  15. HUMULIN N [Suspect]
     Active Substance: INSULIN HUMAN
     Indication: DIABETES MELLITUS
     Dosage: UNK, 2/D
     Dates: start: 1962, end: 1997
  16. HUMALOG [Suspect]
     Active Substance: INSULIN LISPRO
     Indication: DIABETES MELLITUS
     Dosage: UNK, AS NEEDED
     Dates: start: 1962
  17. SODIUM CHLORIDE. [Suspect]
     Active Substance: SODIUM CHLORIDE
     Dosage: 10 U, UNK
     Dates: start: 20091203, end: 200912
  18. MACRODANTIN [Concomitant]
     Active Substance: NITROFURANTOIN
  19. ZETIA [Concomitant]
     Active Substance: EZETIMIBE
  20. PREVACID [Concomitant]
     Active Substance: LANSOPRAZOLE

REACTIONS (6)
  - Blood glucose increased [Recovered/Resolved]
  - Drug dispensing error [Recovered/Resolved]
  - Drug dose omission [Unknown]
  - Urinary tract infection [Recovered/Resolved]
  - Blood glucose fluctuation [Recovered/Resolved]
  - Wrong drug administered [Recovered/Resolved]

NARRATIVE: CASE EVENT DATE: 200912
